FAERS Safety Report 6251855-X (Version None)
Quarter: 2009Q2

REPORT INFORMATION
  Report Type: 
  Country: None (occurrence: None)
  Receive Date: 20090630
  Receipt Date: 20090618
  Transmission Date: 20091009
  Serious: Yes (Death, Hospitalization)
  Sender: FDA-Public Use
  Company Number: GB-PFIZER INC-2008095040

PATIENT
  Age: 77 Year

DRUGS (11)
  1. SULFASALAZINE [Suspect]
     Indication: RHEUMATOID ARTHRITIS
     Dosage: 1 G, 2X/DAY
     Route: 048
     Dates: start: 19950101, end: 20080930
  2. METHOTREXATE [Suspect]
     Indication: RHEUMATOID ARTHRITIS
     Dosage: EVERY WEEK
     Route: 048
     Dates: start: 20030101, end: 20080930
  3. AMITRIPTYLINE [Concomitant]
  4. ACETYLSALICYLIC ACID [Concomitant]
  5. DIPYRIDAMOLE [Concomitant]
     Indication: CEREBROVASCULAR ACCIDENT
     Route: 048
     Dates: start: 20080708, end: 20080901
  6. DIPYRIDAMOLE [Concomitant]
     Indication: PERIPHERAL VASCULAR DISORDER
  7. FOLIC ACID [Concomitant]
  8. FUROSEMIDE INTENSOL [Concomitant]
  9. METOCLOPRAMIDE [Concomitant]
  10. OMEPRAZOLE [Concomitant]
     Route: 048
     Dates: start: 20080401, end: 20080901
  11. SIMVASTATIN [Concomitant]
     Dosage: 20 MG, 1X/DAY
     Route: 048
     Dates: start: 20050601, end: 20080901

REACTIONS (2)
  - LOWER RESPIRATORY TRACT INFECTION [None]
  - PANCYTOPENIA [None]
